FAERS Safety Report 15426236 (Version 1)
Quarter: 2018Q3

REPORT INFORMATION
  Report Type: Spontaneous
  Country: ES (occurrence: ES)
  Receive Date: 20180925
  Receipt Date: 20180925
  Transmission Date: 20181010
  Serious: Yes (Hospitalization, Other)
  Sender: FDA-Public Use
  Company Number: ES-ASTRAZENECA-2018SF20422

PATIENT
  Sex: Male

DRUGS (4)
  1. NEXIUM [Suspect]
     Active Substance: ESOMEPRAZOLE MAGNESIUM
     Indication: SUPPLEMENTATION THERAPY
     Dosage: 20.0MG UNKNOWN
     Route: 048
     Dates: start: 2011
  2. NEXIUM [Suspect]
     Active Substance: ESOMEPRAZOLE MAGNESIUM
     Indication: SUPPLEMENTATION THERAPY
     Dosage: 20.0MG UNKNOWN
     Route: 048
     Dates: start: 2018
  3. NEXIUM [Suspect]
     Active Substance: ESOMEPRAZOLE MAGNESIUM
     Indication: SUPPLEMENTATION THERAPY
     Dosage: 20.0MG UNKNOWN
     Route: 048
     Dates: start: 2018
  4. NEXIUM [Suspect]
     Active Substance: ESOMEPRAZOLE MAGNESIUM
     Indication: SUPPLEMENTATION THERAPY
     Dosage: 20.0MG UNKNOWN
     Route: 048
     Dates: start: 2018

REACTIONS (4)
  - Poisoning [Unknown]
  - Pancreatitis chronic [Unknown]
  - Dyspnoea [Unknown]
  - Malaise [Unknown]

NARRATIVE: CASE EVENT DATE: 2011
